FAERS Safety Report 5600162-4 (Version None)
Quarter: 2008Q1

REPORT INFORMATION
  Report Type: 
  Country: None (occurrence: None)
  Receive Date: 20080123
  Receipt Date: 20080122
  Transmission Date: 20080703
  Serious: Yes (Other)
  Sender: FDA-Public Use
  Company Number: TR-BRISTOL-MYERS SQUIBB COMPANY-14048847

PATIENT
  Age: 55 Year
  Sex: Female

DRUGS (5)
  1. CYCLOPHOSPHAMIDE [Suspect]
  2. DOXORUBICIN HCL [Suspect]
  3. FLUOROURACIL [Suspect]
  4. TAMOXIFEN [Suspect]
     Indication: BREAST CANCER
  5. RADIOTHERAPY [Suspect]

REACTIONS (1)
  - ENDOMETRIAL SARCOMA [None]
